FAERS Safety Report 5815802-4 (Version None)
Quarter: 2008Q3

REPORT INFORMATION
  Report Type: 
  Country: None (occurrence: None)
  Receive Date: 20080714
  Receipt Date: 20080324
  Transmission Date: 20090109
  Serious: Yes (Hospitalization)
  Sender: FDA-Public Use
  Company Number: 2008VX000749

PATIENT
  Age: 90 Year
  Sex: Male
  Weight: 63.5036 kg

DRUGS (15)
  1. ZELAPAR [Suspect]
     Dosage: 1.25 MG
     Dates: start: 20080129, end: 20080311
  2. LANTUS [Concomitant]
  3. SINEMET [Concomitant]
  4. ZAROXOLYN [Concomitant]
  5. COREG [Concomitant]
  6. LISINOPRIL [Concomitant]
  7. NITROSTAT [Concomitant]
  8. ASPIRIN [Concomitant]
  9. MILK OF MAGNESIA [Concomitant]
  10. ALBUTEROL [Concomitant]
  11. MULTI-VITAMINS [Concomitant]
  12. ALEVE [Concomitant]
  13. MIRAPEX [Concomitant]
  14. MIRAPEX [Concomitant]
  15. BOTULINUM TOXIN TYPE A [Concomitant]

REACTIONS (4)
  - ASTHENIA [None]
  - NAUSEA [None]
  - VOMITING [None]
  - WEIGHT DECREASED [None]
